FAERS Safety Report 7150897-X (Version None)
Quarter: 2010Q4

REPORT INFORMATION
  Report Type: 
  Country: None (occurrence: None)
  Receive Date: 20101210
  Receipt Date: 20101202
  Transmission Date: 20110411
  Serious: Yes (Hospitalization)
  Sender: FDA-Public Use
  Company Number: DE-ROCHE-746734

PATIENT
  Sex: Male
  Weight: 70 kg

DRUGS (3)
  1. PEGINTERFERON ALFA-2A [Suspect]
     Route: 058
     Dates: start: 20100922
  2. BENZODIAZEPINE [Suspect]
     Route: 065
  3. SUBOXONE [Suspect]
     Route: 048
     Dates: start: 20100625

REACTIONS (1)
  - DRUG TOXICITY [None]
